FAERS Safety Report 8203078-2 (Version None)
Quarter: 2012Q1

REPORT INFORMATION
  Report Type: 
  Country: None (occurrence: None)
  Receive Date: 20120312
  Receipt Date: 20120305
  Transmission Date: 20120608
  Serious: Yes (Other)
  Sender: FDA-Public Use
  Company Number: US-BAYER-2012-022516

PATIENT
  Age: 20 Year
  Sex: Female
  Weight: 119 kg

DRUGS (2)
  1. SEIZURE MEDICATION [Concomitant]
  2. ALEVE (CAPLET) [Suspect]
     Dosage: UNK
     Route: 048
     Dates: start: 20120305

REACTIONS (2)
  - MENTAL DISORDER [None]
  - DRUG SCREEN POSITIVE [None]
